FAERS Safety Report 5257522-3 (Version None)
Quarter: 2007Q1

REPORT INFORMATION
  Report Type: 
  Country: None (occurrence: None)
  Receive Date: 20070302
  Receipt Date: 20070216
  Transmission Date: 20070707
  Serious: Yes (Other)
  Sender: FDA-Public Use
  Company Number: 15748

PATIENT
  Sex: Female

DRUGS (2)
  1. PAMIDRONATE DISODIUM [Suspect]
     Indication: BREAST CANCER METASTATIC
  2. ZOLEDRONIC ACID [Suspect]
     Indication: BREAST CANCER METASTATIC

REACTIONS (4)
  - IMPAIRED HEALING [None]
  - ISCHAEMIA [None]
  - OSTEONECROSIS [None]
  - PAIN [None]
